FAERS Safety Report 12620516 (Version 1)
Quarter: 2016Q3

REPORT INFORMATION
  Report Type: Spontaneous
  Country: US (occurrence: US)
  Receive Date: 20160804
  Receipt Date: 20160804
  Transmission Date: 20161109
  Serious: Yes (Other)
  Sender: FDA-Public Use
  Company Number: US-BRISTOL-MYERS SQUIBB COMPANY-BMS-2016-057407

PATIENT
  Age: 71 Year
  Sex: Female

DRUGS (2)
  1. METFORMIN HYDROCHLORIDE. [Suspect]
     Active Substance: METFORMIN HYDROCHLORIDE
     Indication: PRODUCT USED FOR UNKNOWN INDICATION
     Route: 065
  2. PREMARIN [Suspect]
     Active Substance: ESTROGENS, CONJUGATED
     Indication: PRODUCT USED FOR UNKNOWN INDICATION
     Route: 067

REACTIONS (16)
  - Abnormal faeces [Unknown]
  - Dizziness [Unknown]
  - Vaginal infection [Unknown]
  - Abdominal distension [Unknown]
  - Nausea [Unknown]
  - Cataract [Unknown]
  - Dyspnoea [Unknown]
  - Photopsia [Unknown]
  - Pain in extremity [Unknown]
  - Fatigue [Unknown]
  - Memory impairment [Unknown]
  - Diabetes mellitus inadequate control [Unknown]
  - Diarrhoea [Unknown]
  - Breast mass [Unknown]
  - Headache [Unknown]
  - Abdominal pain upper [Unknown]
